FAERS Safety Report 8879059 (Version 1)
Quarter: 2012Q4

REPORT INFORMATION
  Report Type: Spontaneous
  Country: US (occurrence: None)
  Receive Date: 20121031
  Receipt Date: 20121031
  Transmission Date: 20130627
  Serious: Yes (Hospitalization)
  Sender: FDA-Public Use
  Company Number: None

PATIENT
  Age: 50 Year
  Sex: Female
  Weight: 79.38 kg

DRUGS (1)
  1. MIRENA IUD [Suspect]
     Indication: MENORRHAGIA
     Dosage: 1 every 5-years intra-uterine
     Route: 015
     Dates: start: 20120417, end: 20120501

REACTIONS (3)
  - Uterine haemorrhage [None]
  - Endometrial ablation [None]
  - Complication of device insertion [None]
